FAERS Safety Report 24468403 (Version 1)
Quarter: 2024Q4

REPORT INFORMATION
  Report Type: Spontaneous
  Country: JP (occurrence: JP)
  Receive Date: 20241018
  Receipt Date: 20241018
  Transmission Date: 20250114
  Serious: Yes (Hospitalization)
  Sender: NEUROCRINE BIOSCIENCES
  Company Number: JP-NEUROCRINE BIOSCIENCES INC.-2024NBI10349

PATIENT
  Age: 67 Year
  Sex: Male

DRUGS (4)
  1. VALBENAZINE [Suspect]
     Active Substance: VALBENAZINE
     Indication: Tardive dyskinesia
     Dosage: 40 MILLIGRAM, UNK
     Route: 048
  2. VALBENAZINE [Suspect]
     Active Substance: VALBENAZINE
     Dosage: 80 MILLIGRAM, QD
     Route: 048
  3. VALBENAZINE [Suspect]
     Active Substance: VALBENAZINE
     Dosage: 40 MILLIGRAM, UNK
     Route: 048
  4. VALBENAZINE [Suspect]
     Active Substance: VALBENAZINE
     Dosage: UNK, UNK
     Route: 048

REACTIONS (1)
  - Urinary incontinence [Recovered/Resolved]
